FAERS Safety Report 7941911-X (Version None)
Quarter: 2011Q4

REPORT INFORMATION
  Report Type: 
  Country: None (occurrence: None)
  Receive Date: 20111128
  Receipt Date: 20111115
  Transmission Date: 20120403
  Serious: No
  Sender: FDA-Public Use
  Company Number: US-B.I. PHARMACEUTICALS,INC./RIDGEFIELD-2011-BP-26262BP

PATIENT
  Sex: Male

DRUGS (3)
  1. ALDACTONE [Concomitant]
     Indication: HYPERTENSION
     Route: 048
  2. RESTASIS [Concomitant]
     Indication: DRY EYE
  3. PRADAXA [Suspect]
     Indication: ATRIAL FIBRILLATION
     Dosage: 300 MG
     Route: 048

REACTIONS (2)
  - DIZZINESS [None]
  - URINE FLOW DECREASED [None]
